FAERS Safety Report 14883428 (Version 1)
Quarter: 2018Q2

REPORT INFORMATION
  Report Type: Spontaneous
  Country: GB (occurrence: GB)
  Receive Date: 20180511
  Receipt Date: 20180511
  Transmission Date: 20180711
  Serious: Yes (Death)
  Sender: FDA-Public Use
  Company Number: GB-FRESENIUS KABI-FK201805617

PATIENT

DRUGS (2)
  1. CISPLATIN (MANUFACTURER UNKNOWN) [Suspect]
     Active Substance: CISPLATIN
     Indication: NEOPLASM
     Route: 065
  2. LURBINECTEDIN [Suspect]
     Active Substance: LURBINECTEDIN
     Indication: NEOPLASM

REACTIONS (3)
  - Thrombocytopenia [Fatal]
  - Renal failure [Fatal]
  - Neutropenia [Fatal]
